FAERS Safety Report 7258436-X (Version None)
Quarter: 2011Q1

REPORT INFORMATION
  Report Type: 
  Country: None (occurrence: None)
  Receive Date: 20110129
  Receipt Date: 20100831
  Transmission Date: 20110831
  Serious: No
  Sender: FDA-Public Use
  Company Number: US-ABBOTT-10P-163-0669021-00

PATIENT
  Sex: Female
  Weight: 63.56 kg

DRUGS (12)
  1. LEXAPRO [Concomitant]
     Indication: PRODUCT USED FOR UNKNOWN INDICATION
  2. CALCIMATE [Concomitant]
     Indication: PRODUCT USED FOR UNKNOWN INDICATION
  3. CELEBREX [Concomitant]
     Indication: PRODUCT USED FOR UNKNOWN INDICATION
  4. HUMIRA [Suspect]
     Indication: PSORIASIS
     Route: 058
     Dates: start: 20100501, end: 20100801
  5. CALCIUM PIRUVATE [Concomitant]
     Indication: PRODUCT USED FOR UNKNOWN INDICATION
  6. FISH OIL [Concomitant]
     Indication: PRODUCT USED FOR UNKNOWN INDICATION
  7. TRIFLEX [Concomitant]
     Indication: PRODUCT USED FOR UNKNOWN INDICATION
  8. VITAMIN B6 [Concomitant]
     Indication: PRODUCT USED FOR UNKNOWN INDICATION
  9. PHENDIMETRAZINE FUMARATE [Concomitant]
     Indication: PRODUCT USED FOR UNKNOWN INDICATION
     Dosage: SHOULD BE TAKING TID BUT TAKES BIDBUT TAKES BID
  10. TRAMADOL HCL [Concomitant]
     Indication: KNEE OPERATION
  11. VITAMIN B-12 [Concomitant]
     Indication: PRODUCT USED FOR UNKNOWN INDICATION
  12. FLAX SEED [Concomitant]
     Indication: PRODUCT USED FOR UNKNOWN INDICATION

REACTIONS (5)
  - MUSCULOSKELETAL PAIN [None]
  - CELLULITIS [None]
  - CONTUSION [None]
  - ANIMAL SCRATCH [None]
  - INFLAMMATION [None]
